FAERS Safety Report 9169620 (Version 2)
Quarter: 2013Q2

REPORT INFORMATION
  Report Type: Report from Study
  Country: US (occurrence: US)
  Receive Date: 20130318
  Receipt Date: 20130409
  Transmission Date: 20140414
  Serious: Yes (Hospitalization)
  Sender: FDA-Public Use
  Company Number: US-ACTELION-A-US2013-80399

PATIENT
  Age: 42 Year
  Sex: Female

DRUGS (2)
  1. TRACLEER [Suspect]
     Indication: PULMONARY ARTERIAL HYPERTENSION
     Dosage: UNK
     Route: 048
     Dates: end: 20130327
  2. SILDENAFIL [Concomitant]

REACTIONS (4)
  - Myocardial infarction [Unknown]
  - Blood potassium decreased [Unknown]
  - Fluid overload [Unknown]
  - Lung disorder [Unknown]
